FAERS Safety Report 7977702 (Version 2)
Quarter: 2012Q4

REPORT INFORMATION
  Report Type: 
  Country: NZ (occurrence: NZ)
  Receive Date: 20110607
  Receipt Date: 20121105
  Transmission Date: 20130627
  Serious: Yes (Death, Other)
  Sender: FDA-Public Use
  Company Number: PHHO2004NZ07239

PATIENT
  Age: 87 Year
  Sex: Male

DRUGS (4)
  1. CLOZARIL [Suspect]
     Indication: SCHIZOPHRENIA
     Dosage: 50 mg, BID
     Route: 048
     Dates: start: 20040325
  2. CLONAZEPAM [Concomitant]
     Dosage: 0.25 mg, UNK
  3. QUETIAPINE [Concomitant]
     Dosage: 100 mg, BID
  4. SINEMET [Concomitant]
     Dosage: UNK 25/200 BD

REACTIONS (4)
  - Death [Fatal]
  - Pneumonia [Unknown]
  - Dementia [Unknown]
  - Asthenia [Unknown]
